FAERS Safety Report 21444574 (Version 1)
Quarter: 2022Q4

REPORT INFORMATION
  Report Type: Spontaneous
  Country: US (occurrence: None)
  Receive Date: 20221010
  Receipt Date: 20221010
  Transmission Date: 20230113
  Serious: Yes (Other)
  Sender: FDA-Public Use
  Company Number: None

PATIENT
  Sex: Female

DRUGS (4)
  1. HYQVIA [Suspect]
     Active Substance: HUMAN IMMUNOGLOBULIN G\HYALURONIDASE RECOMBINANT HUMAN
     Indication: Immunodeficiency common variable
     Dosage: OTHER STRENGTH : 30GM/300ML;?PUSH 17.5ML HY INTO SUB-O SET AT 1 TO 2 ML PER MINUTE. THEN INFUSE 35GM
     Route: 058
     Dates: start: 20220819
  2. ACETAMINOPHEN [Concomitant]
     Active Substance: ACETAMINOPHEN
  3. DIPHENHYDRAMINE CAP [Concomitant]
  4. EPINEPHRINE PEN [Concomitant]

REACTIONS (5)
  - Urinary retention [None]
  - Headache [None]
  - Photophobia [None]
  - Musculoskeletal stiffness [None]
  - Peripheral swelling [None]
